FAERS Safety Report 9500606 (Version 1)
Quarter: 2013Q3

REPORT INFORMATION
  Report Type: Spontaneous
  Country: US (occurrence: US)
  Receive Date: 20130905
  Receipt Date: 20130905
  Transmission Date: 20140515
  Serious: Yes (Life-Threatening, Hospitalization, Other)
  Sender: FDA-Public Use
  Company Number: US-COVIDIEN/TYCO HEALTHCARE/MALLINCKRODT-T201304225

PATIENT
  Age: 33 Year
  Sex: Male

DRUGS (2)
  1. GABLOFEN [Suspect]
     Indication: MUSCLE SPASTICITY
     Dosage: 60 MCG/DAY
     Route: 037
  2. BACLOFEN [Concomitant]
     Route: 048

REACTIONS (8)
  - Respiratory arrest [Recovering/Resolving]
  - Mental status changes [Recovering/Resolving]
  - Implant site erosion [Recovering/Resolving]
  - Pyrexia [Recovering/Resolving]
  - Hypotension [Recovering/Resolving]
  - Wound dehiscence [Recovering/Resolving]
  - Wound secretion [Recovering/Resolving]
  - Muscle spasticity [Recovering/Resolving]
